FAERS Safety Report 25860199 (Version 2)
Quarter: 2025Q4

REPORT INFORMATION
  Report Type: Spontaneous
  Country: EU (occurrence: EU)
  Receive Date: 20250929
  Receipt Date: 20251113
  Transmission Date: 20260118
  Serious: No
  Sender: MYLAN
  Company Number: EU-HIKMA PHARMACEUTICALS-IT-H14001-25-10321

PATIENT
  Age: 65 Year
  Sex: Male

DRUGS (7)
  1. GEMCITABINE [Concomitant]
     Active Substance: GEMCITABINE
     Indication: Transitional cell carcinoma
     Dosage: UNK (FOUR CYCLES)
  2. GEMCITABINE [Concomitant]
     Active Substance: GEMCITABINE
     Indication: Rectal adenocarcinoma
  3. CISPLATIN [Suspect]
     Active Substance: CISPLATIN
     Indication: Transitional cell carcinoma
     Dosage: UNK
  4. CISPLATIN [Suspect]
     Active Substance: CISPLATIN
     Indication: Rectal adenocarcinoma
  5. AMOXICILLIN\CLAVULANIC ACID [Concomitant]
     Active Substance: AMOXICILLIN\CLAVULANIC ACID
     Indication: Pneumonia legionella
     Dosage: UNK
  6. RIFAXIMIN [Concomitant]
     Active Substance: RIFAXIMIN
     Indication: Pneumonia legionella
     Dosage: UNK
  7. LEVOFLOXACIN [Concomitant]
     Active Substance: LEVOFLOXACIN
     Indication: Pneumonia legionella
     Dosage: UNK

REACTIONS (1)
  - Blood creatinine increased [Unknown]
